FAERS Safety Report 8830769 (Version 2)
Quarter: 2012Q4

REPORT INFORMATION
  Report Type: 
  Country: US (occurrence: US)
  Receive Date: 20121009
  Receipt Date: 20121128
  Transmission Date: 20130627
  Serious: Yes (Other)
  Sender: FDA-Public Use
  Company Number: US-PFIZER INC-2012246755

PATIENT
  Age: 61 Year
  Sex: Female
  Weight: 117.91 kg

DRUGS (17)
  1. LYRICA [Suspect]
     Indication: NEUROPATHY
     Dosage: 100 mg, 3x/day
     Route: 048
     Dates: start: 2005
  2. LYRICA [Suspect]
     Dosage: 50 mg, 3x/day
     Route: 048
  3. LIPITOR [Suspect]
     Indication: HIGH CHOLESTEROL
     Dosage: 40 mg, 1x/day
     Route: 048
  4. KLOR-CON [Concomitant]
     Dosage: 20 mEq, UNK
  5. FUROSEMIDE [Concomitant]
     Dosage: 40 mg, UNK
  6. VASOTEC [Concomitant]
     Indication: BLOOD PRESSURE HIGH
     Dosage: 5 mg, UNK
  7. PRILOSEC [Concomitant]
     Dosage: 20 mg, UNK
  8. OS-CAL [Concomitant]
     Dosage: 500 mg, UNK
  9. HALFPRIN [Concomitant]
     Dosage: 162 mg, UNK
  10. FOLIC ACID [Concomitant]
     Dosage: 1 mg, UNK
  11. METOPROLOL [Concomitant]
     Dosage: 25 mg, UNK
  12. TAMSULOSIN [Concomitant]
     Dosage: 70 mg, UNK
  13. PINDOLOL [Concomitant]
     Dosage: 5 mg, UNK
  14. HYDROCODONE W/ACETAMINOPHEN [Concomitant]
     Dosage: 7.5/325
  15. VITAMIN D3 [Concomitant]
     Dosage: 5000 IU, UNK
  16. ESTROVEN EXTRA STRENGTH [Concomitant]
     Indication: HORMONAL IMBALANCE
     Dosage: UNK
  17. CENTRUM SILVER [Concomitant]
     Dosage: UNK

REACTIONS (2)
  - Surgery [Unknown]
  - Weight increased [Unknown]
